FAERS Safety Report 25408923 (Version 1)
Quarter: 2025Q2

REPORT INFORMATION
  Report Type: Spontaneous
  Country: US (occurrence: US)
  Receive Date: 20250607
  Receipt Date: 20250607
  Transmission Date: 20250717
  Serious: No
  Sender: ALEXION PHARMACEUTICALS
  Company Number: US-AstraZeneca-CH-00882919A

PATIENT

DRUGS (1)
  1. XIGDUO XR [Suspect]
     Active Substance: DAPAGLIFLOZIN PROPANEDIOL\METFORMIN HYDROCHLORIDE
     Dosage: 5 MILLIGRAM, QD
     Route: 065

REACTIONS (5)
  - Increased dose administered [Unknown]
  - Product selection error [Unknown]
  - Gastrointestinal disorder [Unknown]
  - Therapy change [Unknown]
  - Illness [Unknown]
